FAERS Safety Report 4306900-5 (Version None)
Quarter: 2004Q1

REPORT INFORMATION
  Report Type: 
  Country: None (occurrence: None)
  Receive Date: 20040227
  Receipt Date: 20040227
  Transmission Date: 20041129
  Serious: No
  Sender: FDA-Public Use
  Company Number: None

PATIENT
  Age: 48 Year
  Sex: Male
  Weight: 149.687 kg

DRUGS (3)
  1. GLIPIZIDE [Suspect]
     Dosage: 5 MG 12 HOURS ORAL
     Route: 048
  2. ALBUTEROL [Concomitant]
  3. FAMOTIDINE [Concomitant]

REACTIONS (3)
  - BLOOD GLUCOSE INCREASED [None]
  - DRUG INEFFECTIVE [None]
  - PHARMACEUTICAL PRODUCT COMPLAINT [None]
